FAERS Safety Report 14815694 (Version 1)
Quarter: 2018Q2

REPORT INFORMATION
  Report Type: Report from Study
  Country: US (occurrence: US)
  Receive Date: 20180426
  Receipt Date: 20180426
  Transmission Date: 20180711
  Serious: Yes (Hospitalization, Other)
  Sender: FDA-Public Use
  Company Number: US-GILEAD-2018-0334967

PATIENT
  Age: 18 Year
  Sex: Female

DRUGS (1)
  1. AZTREONAM LYSINE [Suspect]
     Active Substance: AZTREONAM LYSINE
     Indication: PSEUDOMONAS INFECTION
     Dosage: 75 MG, TID, (28 DAYS ON AND 28 DAYS OFF)
     Route: 055
     Dates: start: 20171019, end: 20180111

REACTIONS (3)
  - Tracheal inflammation [Unknown]
  - Tracheal haemorrhage [Unknown]
  - Upper respiratory tract infection [Unknown]
